FAERS Safety Report 19455587 (Version 2)
Quarter: 2021Q2

REPORT INFORMATION
  Report Type: Spontaneous
  Country: IT (occurrence: IT)
  Receive Date: 20210623
  Receipt Date: 20210628
  Transmission Date: 20210717
  Serious: Yes (Other)
  Sender: FDA-Public Use
  Company Number: IT-JNJFOC-20210650113

PATIENT
  Age: 90 Year
  Sex: Male

DRUGS (5)
  1. CARDICOR [Concomitant]
     Active Substance: BISOPROLOL
  2. LASIX [Suspect]
     Active Substance: FUROSEMIDE
     Indication: DIURETIC THERAPY
     Route: 048
  3. LUVION [CANRENOIC ACID] [Concomitant]
     Active Substance: CANRENOIC ACID
  4. XARELTO [Suspect]
     Active Substance: RIVAROXABAN
     Indication: THROMBOSIS PROPHYLAXIS
     Dosage: 1 DF, QD
     Route: 048
  5. CRESTOR [Concomitant]
     Active Substance: ROSUVASTATIN CALCIUM

REACTIONS (2)
  - Azotaemia [Unknown]
  - Anuria [Unknown]

NARRATIVE: CASE EVENT DATE: 20210219
